FAERS Safety Report 26152276 (Version 1)
Quarter: 2025Q4

REPORT INFORMATION
  Report Type: Report from Study
  Country: EU (occurrence: EU)
  Receive Date: 20251214
  Receipt Date: 20251214
  Transmission Date: 20260117
  Serious: Yes (Other)
  Sender: TEVA
  Company Number: EU-TEVA-VS-3401960

PATIENT
  Age: 22 Year
  Sex: Female
  Weight: 88 kg

DRUGS (1)
  1. OLANZAPINE [Suspect]
     Active Substance: OLANZAPINE
     Indication: Schizophrenia
     Route: 065

REACTIONS (5)
  - Type 1 diabetes mellitus [Not Recovered/Not Resolved]
  - Cardiac disorder [Recovered/Resolved]
  - Abnormal weight gain [Recovered/Resolved]
  - Appetite disorder [Recovered/Resolved]
  - Somnolence [Recovered/Resolved]

NARRATIVE: CASE EVENT DATE: 20090101
